APPROVED DRUG PRODUCT: POMALYST
Active Ingredient: POMALIDOMIDE
Strength: 3MG
Dosage Form/Route: CAPSULE;ORAL
Application: N204026 | Product #003 | TE Code: AB
Applicant: BRISTOL MYERS SQUIBB CO
Approved: Feb 8, 2013 | RLD: Yes | RS: No | Type: RX

PATENTS:
Patent 8828427 | Expires: Jun 21, 2031
Patent 9993467 | Expires: May 19, 2030
Patent 10555939 | Expires: May 19, 2030
Patent 8828427*PED | Expires: Dec 21, 2031
Patent 9993467*PED | Expires: Nov 19, 2030
Patent 10555939*PED | Expires: Nov 19, 2030

EXCLUSIVITY:
Code: ODE-296 | Date: May 14, 2027
Code: ODE-297 | Date: May 14, 2027
Code: PED | Date: Nov 14, 2027
Code: PED | Date: Nov 14, 2027